FAERS Safety Report 6257421-4 (Version None)
Quarter: 2009Q3

REPORT INFORMATION
  Report Type: 
  Country: None (occurrence: None)
  Receive Date: 20090706
  Receipt Date: 20090623
  Transmission Date: 20100115
  Serious: Yes (Other)
  Sender: FDA-Public Use
  Company Number: FI-MERCK-0903USA00227

PATIENT
  Age: 76 Year
  Sex: Male

DRUGS (9)
  1. ISENTRESS [Suspect]
     Indication: HIV INFECTION
     Route: 048
     Dates: start: 20081210, end: 20090209
  2. TRUVADA [Suspect]
     Indication: HIV INFECTION
     Route: 048
     Dates: start: 20081210, end: 20090209
  3. MAREVAN [Concomitant]
     Indication: ATRIAL FIBRILLATION
     Route: 048
  4. DIOVAN [Concomitant]
     Indication: CARDIAC FAILURE
     Route: 048
  5. DIGOXIN [Concomitant]
     Indication: CARDIAC FAILURE
     Route: 048
  6. TENOX (TEMAZEPAM) [Concomitant]
     Indication: SLEEP DISORDER
     Route: 048
  7. KIVEXA [Concomitant]
     Route: 065
  8. REYATAZ [Concomitant]
     Route: 065
  9. STOCRIN [Concomitant]
     Route: 048

REACTIONS (2)
  - INTERNATIONAL NORMALISED RATIO DECREASED [None]
  - THROMBOCYTOPENIA [None]
